FAERS Safety Report 14184567 (Version 1)
Quarter: 2017Q4

REPORT INFORMATION
  Report Type: Spontaneous
  Country: US (occurrence: US)
  Receive Date: 20171113
  Receipt Date: 20171113
  Transmission Date: 20180321
  Serious: Yes (Death, Hospitalization, Other)
  Sender: FDA-Public Use
  Company Number: US-PFIZER INC-2017484622

PATIENT
  Age: 60 Year
  Sex: Male

DRUGS (1)
  1. SUTENT [Suspect]
     Active Substance: SUNITINIB MALATE
     Indication: RENAL CANCER
     Dosage: 50 MG, CYCLIC (4 CAPSULES; EVERY OTHER DAY 14 DOSES ON 7 DAY OFF)
     Route: 048
     Dates: start: 20170724, end: 20171026

REACTIONS (3)
  - Death [Fatal]
  - Dyspnoea [Unknown]
  - Pulmonary necrosis [Unknown]

NARRATIVE: CASE EVENT DATE: 20171026
